FAERS Safety Report 18482409 (Version 1)
Quarter: 2020Q4

REPORT INFORMATION
  Report Type: Spontaneous
  Country: US (occurrence: US)
  Receive Date: 20201109
  Receipt Date: 20201109
  Transmission Date: 20210114
  Serious: No
  Sender: FDA-Public Use
  Company Number: US-ALLERGAN-2024598US

PATIENT
  Sex: Female

DRUGS (7)
  1. BIOTINE [Concomitant]
  2. COENZYME Q10 [Concomitant]
     Active Substance: DIETARY SUPPLEMENT\UBIDECARENONE
  3. VIVISCAL                           /02137601/ [Concomitant]
  4. CLARITINE [Concomitant]
     Active Substance: LORATADINE
  5. VITAMIN D3 [Concomitant]
     Active Substance: CHOLECALCIFEROL
  6. LO LOESTRIN FE [Suspect]
     Active Substance: ETHINYL ESTRADIOL\NORETHINDRONE ACETATE
     Indication: HAEMORRHAGE
     Dosage: UNK
     Dates: start: 202006
  7. VITAMIN B6 [Concomitant]
     Active Substance: PYRIDOXINE HYDROCHLORIDE

REACTIONS (2)
  - Off label use [Unknown]
  - Metrorrhagia [Unknown]
